FAERS Safety Report 10673811 (Version 2)
Quarter: 2015Q1

REPORT INFORMATION
  Report Type: Spontaneous
  Country: US (occurrence: None)
  Receive Date: 20141222
  Receipt Date: 20150304
  Transmission Date: 20150720
  Serious: Yes (Other)
  Sender: FDA-Public Use
  Company Number: 2014VER00358

PATIENT
  Age: 20 Year
  Sex: Female

DRUGS (3)
  1. MYORISAN [Suspect]
     Active Substance: ISOTRETINOIN
     Route: 048
     Dates: start: 20141105, end: 20141115
  2. MYORISAN [Suspect]
     Active Substance: ISOTRETINOIN
     Dates: start: 20140306, end: 20140528
  3. MYORISAN [Suspect]
     Active Substance: ISOTRETINOIN
     Dates: start: 20140529, end: 20141104

REACTIONS (6)
  - Abortion spontaneous [None]
  - Maternal exposure before pregnancy [None]
  - Thrombosis [None]
  - Urinary tract infection [None]
  - Pregnancy test positive [None]
  - Vaginal haemorrhage [None]

NARRATIVE: CASE EVENT DATE: 20141014
